FAERS Safety Report 18162169 (Version 3)
Quarter: 2020Q4

REPORT INFORMATION
  Report Type: Report from Study
  Country: US (occurrence: US)
  Receive Date: 20200818
  Receipt Date: 20201125
  Transmission Date: 20210113
  Serious: Yes (Other)
  Sender: FDA-Public Use
  Company Number: US-BIOVITRUM-2020US4360

PATIENT
  Sex: Female

DRUGS (3)
  1. KINERET [Suspect]
     Active Substance: ANAKINRA
     Indication: RHEUMATOID ARTHRITIS
     Route: 058
     Dates: start: 20200201
  2. KINERET [Suspect]
     Active Substance: ANAKINRA
     Route: 058
     Dates: start: 20200128
  3. KINERET [Suspect]
     Active Substance: ANAKINRA
     Route: 058
     Dates: start: 20200202

REACTIONS (7)
  - Loss of personal independence in daily activities [Unknown]
  - Platelet count decreased [Unknown]
  - Off label use [Unknown]
  - Bronchitis [Unknown]
  - Pain [Unknown]
  - Rheumatoid arthritis [Unknown]
  - Sinusitis [Unknown]
